FAERS Safety Report 5471128-2 (Version None)
Quarter: 2007Q3

REPORT INFORMATION
  Report Type: 
  Country: None (occurrence: None)
  Receive Date: 20070928
  Receipt Date: 20070926
  Transmission Date: 20080115
  Serious: Yes (Other)
  Sender: FDA-Public Use
  Company Number: US-ASTRAZENECA-2006UW21667

PATIENT
  Age: 29629 Day
  Sex: Male
  Weight: 68.2 kg

DRUGS (3)
  1. SEROQUEL [Suspect]
     Indication: DEPRESSION
     Dosage: 25 MG - 100 MG
     Route: 048
     Dates: start: 20020118
  2. RISPERDAL [Concomitant]
     Route: 048
     Dates: start: 19980101
  3. ZYPREXA [Concomitant]
     Route: 048
     Dates: start: 19980101, end: 20020101

REACTIONS (2)
  - DIABETES MELLITUS [None]
  - DIABETIC KETOACIDOSIS [None]
